FAERS Safety Report 15233907 (Version 4)
Quarter: 2018Q3

REPORT INFORMATION
  Report Type: Report from Study
  Country: MX (occurrence: MX)
  Receive Date: 20180802
  Receipt Date: 20180919
  Transmission Date: 20181010
  Serious: Yes (Other)
  Sender: FDA-Public Use
  Company Number: PHHY2018MX060422

PATIENT
  Age: 65 Year
  Sex: Female
  Weight: 62 kg

DRUGS (17)
  1. TOLTERODINE [Concomitant]
     Active Substance: TOLTERODINE
     Indication: RENAL DISORDER
     Dosage: 1 DF, QD
     Route: 048
     Dates: start: 20180730
  2. LEDERTREXATE [Concomitant]
     Active Substance: METHOTREXATE
     Indication: ARTHRITIS
     Dosage: 4 DF(2.5 MG), UNK (ON WEDNESDAYS)
     Route: 048
  3. EXFORGE HCT [Suspect]
     Active Substance: AMLODIPINE BESYLATE\HYDROCHLOROTHIAZIDE\VALSARTAN
     Indication: HYPERTENSION
     Dosage: 1 DF (AMLODIPINE 5 MG,HYDROCHLOROTHIAZIDE 12.5 MG,VALSARTAN 160 MG), QD
     Route: 048
  4. FERRANIN COMPLEX [Concomitant]
     Indication: VITAMIN SUPPLEMENTATION
     Dosage: 1 DF, QD
     Route: 048
     Dates: start: 20180730
  5. PREDNISONE. [Concomitant]
     Active Substance: PREDNISONE
     Indication: RHEUMATOID ARTHRITIS
     Dosage: 1 DF(5 MG), QD
     Route: 048
     Dates: end: 20180820
  6. FOLIC ACID. [Concomitant]
     Active Substance: FOLIC ACID
     Indication: ANAEMIA PROPHYLAXIS
     Dosage: 1 DF, QD
     Route: 048
  7. EXFORGE HCT [Suspect]
     Active Substance: AMLODIPINE BESYLATE\HYDROCHLOROTHIAZIDE\VALSARTAN
     Dosage: 0.5 DF(AMLODIPINE 10 MG,HYDROCHLOROTHIAZIDE 25 MG,VALSARTAN 320 MG), QD
     Route: 048
  8. OMEPRAZOLE. [Concomitant]
     Active Substance: OMEPRAZOLE
     Indication: GASTRITIS PROPHYLAXIS
     Dosage: 1 DF, QD
     Route: 048
  9. CALCIUM [Concomitant]
     Active Substance: CALCIUM
     Indication: BONE DISORDER
     Dosage: 1 DF, QD
     Route: 048
  10. SPIRONOLACTONE. [Concomitant]
     Active Substance: SPIRONOLACTONE
     Indication: BLOOD URIC ACID ABNORMAL
  11. MALIVAL AP [Concomitant]
     Indication: ARTHRITIS
     Dosage: 1 DF, QD
     Route: 048
  12. ZYLOPRIM [Concomitant]
     Active Substance: ALLOPURINOL
     Indication: BLOOD URIC ACID
     Dosage: 1 DF, QD
     Route: 048
     Dates: start: 20180730
  13. SPIRONOLACTONE. [Concomitant]
     Active Substance: SPIRONOLACTONE
     Indication: CARDIOMEGALY
     Dosage: 1 DF, QD (MONTH HALF AGO)
     Route: 048
  14. FUROSEMIDE. [Concomitant]
     Active Substance: FUROSEMIDE
     Indication: RENAL DISORDER
     Dosage: 1 DF, QD
     Route: 048
  15. FOLIC ACID. [Concomitant]
     Active Substance: FOLIC ACID
     Indication: CARDIOMEGALY
  16. LEDERTREXATE [Concomitant]
     Active Substance: METHOTREXATE
     Dosage: 4 DF(2.5 MG), (2 IN THE MORNING AND 2 AT NIGHT. ONLY ON WEDNESDAYS)
     Route: 048
  17. VITAMIN E [Concomitant]
     Active Substance: .ALPHA.-TOCOPHEROL
     Indication: PRODUCT USED FOR UNKNOWN INDICATION
     Dosage: 1 DF, QD
     Route: 048

REACTIONS (26)
  - Dry skin [Unknown]
  - Arthritis [Unknown]
  - Blood pressure increased [Recovered/Resolved]
  - Drug dispensing error [Unknown]
  - Cardiomegaly [Not Recovered/Not Resolved]
  - Pain in extremity [Unknown]
  - Drug intolerance [Unknown]
  - Pain [Recovering/Resolving]
  - Fatigue [Not Recovered/Not Resolved]
  - Somnolence [Recovering/Resolving]
  - Hypotension [Recovered/Resolved]
  - Concomitant disease aggravated [Not Recovered/Not Resolved]
  - Renal impairment [Recovering/Resolving]
  - Peripheral swelling [Unknown]
  - Stress [Unknown]
  - Hypotension [Unknown]
  - Wrong technique in product usage process [Not Recovered/Not Resolved]
  - General physical health deterioration [Unknown]
  - Kidney small [Unknown]
  - Nausea [Unknown]
  - Blood uric acid increased [Not Recovered/Not Resolved]
  - Fluid retention [Not Recovered/Not Resolved]
  - Dizziness [Not Recovered/Not Resolved]
  - Renal disorder [Not Recovered/Not Resolved]
  - Asthenia [Unknown]
  - Blood glucose increased [Not Recovered/Not Resolved]

NARRATIVE: CASE EVENT DATE: 201807
